FAERS Safety Report 9363068 (Version 2)
Quarter: 2013Q2

REPORT INFORMATION
  Report Type: Spontaneous
  Country: IT (occurrence: None)
  Receive Date: 20130619
  Receipt Date: 20130627
  Transmission Date: 20140414
  Serious: Yes (Death)
  Sender: FDA-Public Use
  Company Number: 1755696

PATIENT
  Age: 52 Year
  Sex: Female

DRUGS (12)
  1. CYTARABINE [Suspect]
     Indication: ACUTE MYELOID LEUKAEMIA
     Route: 042
     Dates: start: 20130323, end: 20130327
  2. ZAVEDOS [Suspect]
     Indication: ACUTE MYELOID LEUKAEMIA
     Route: 042
     Dates: start: 20130323, end: 20130325
  3. ZOFRAN [Suspect]
     Indication: VOMITING
     Dosage: 3 POSOLOGICAL UNIT, 1 DAY, INTRAVENOUS
     Dates: start: 20130323, end: 20130328
  4. FLUDARABINE PHOSPHATE [Suspect]
     Indication: ACUTE MYELOID LEUKAEMIA
     Route: 042
     Dates: start: 20130323, end: 20130327
  5. (ALLOPURINOLO) [Concomitant]
  6. (DOMPERIDONE) [Concomitant]
  7. (LUXAZONE) [Concomitant]
  8. (MYCOSTATIN) [Concomitant]
  9. (MEPRAL/00661201/) [Concomitant]
  10. (LEVOXACIN) [Concomitant]
  11. (DECADRON) [Concomitant]
  12. (MINIAS) [Concomitant]

REACTIONS (11)
  - Cardiac arrest [None]
  - Torsade de pointes [None]
  - Vomiting [None]
  - Nausea [None]
  - Abdominal pain [None]
  - Abdominal pain [None]
  - Hypotension [None]
  - Asthenia [None]
  - Respiratory arrest [None]
  - Ventricular fibrillation [None]
  - Mydriasis [None]
